FAERS Safety Report 9266782 (Version 1)
Quarter: 2013Q2

REPORT INFORMATION
  Report Type: Spontaneous
  Country: US (occurrence: US)
  Receive Date: 20130502
  Receipt Date: 20130502
  Transmission Date: 20140414
  Serious: Yes (Hospitalization)
  Sender: FDA-Public Use
  Company Number: US-BAYER-2013-053306

PATIENT
  Age: 49 Year
  Sex: Female
  Weight: 73 kg

DRUGS (5)
  1. YAZ [Suspect]
     Indication: MENORRHAGIA
     Dosage: UNK
     Dates: start: 20080616, end: 20100308
  2. BUSPIRONE [Concomitant]
     Dosage: 15 MG, A DAY
  3. AMITIZA [Concomitant]
     Dosage: 8 MCG, A DAY
  4. DICYCLOMINE [Concomitant]
     Dosage: 10 MG, 30 DAY SUPPLY
  5. NSAID^S [Concomitant]

REACTIONS (8)
  - Pulmonary embolism [None]
  - Deep vein thrombosis [None]
  - Syncope [None]
  - Chest pain [None]
  - Dyspnoea [None]
  - Hyperhidrosis [None]
  - Vomiting [None]
  - Atelectasis [None]
